FAERS Safety Report 4380813-5 (Version None)
Quarter: 2004Q2

REPORT INFORMATION
  Report Type: 
  Country: None (occurrence: None)
  Receive Date: 20040616
  Receipt Date: 20040604
  Transmission Date: 20050107
  Serious: Yes (Life-Threatening, Other)
  Sender: FDA-Public Use
  Company Number: 2004037393

PATIENT
  Age: 78 Year
  Sex: Male

DRUGS (2)
  1. CARDURA XL [Suspect]
     Indication: ILL-DEFINED DISORDER
     Dosage: (4 MG, 1 IN 1 D), ORAL
     Route: 048
     Dates: start: 20040401
  2. NIFEDIPINE [Concomitant]

REACTIONS (6)
  - ALCOHOL USE [None]
  - BLOOD PRESSURE DECREASED [None]
  - CHEST DISCOMFORT [None]
  - PALPITATIONS [None]
  - PROSTATE CANCER [None]
  - SYNCOPE [None]
